FAERS Safety Report 5716942-0 (Version None)
Quarter: 2008Q2

REPORT INFORMATION
  Report Type: 
  Country: None (occurrence: None)
  Receive Date: 20080422
  Receipt Date: 20080409
  Transmission Date: 20081010
  Serious: Yes (Hospitalization)
  Sender: FDA-Public Use
  Company Number: 2008BI009562

PATIENT
  Age: 31 Year
  Sex: Male

DRUGS (5)
  1. TYSABRI [Suspect]
     Indication: DRUG USE FOR UNKNOWN INDICATION
     Dosage: 300 MG;QM;IV
     Route: 042
     Dates: start: 20080307, end: 20080307
  2. BACTRIM [Concomitant]
  3. SUTENT [Concomitant]
  4. LEUSTATIN [Concomitant]
  5. SPECTALFOLDINE [Concomitant]

REACTIONS (2)
  - CONDITION AGGRAVATED [None]
  - THROMBOCYTOPENIA [None]
